FAERS Safety Report 22839656 (Version 4)
Quarter: 2023Q4

REPORT INFORMATION
  Report Type: Report from Study
  Country: CA (occurrence: CA)
  Receive Date: 20230818
  Receipt Date: 20231003
  Transmission Date: 20240110
  Serious: Yes (Hospitalization, Other)
  Sender: FDA-Public Use
  Company Number: CA-BAUSCH-BL-2022-024366

PATIENT
  Age: 81 Year
  Sex: Male

DRUGS (2)
  1. SILIQ [Suspect]
     Active Substance: BRODALUMAB
     Indication: Psoriasis
     Dosage: 210MG/ 1.5 ML, WEEKLY (WEEK 0,1,2)
     Route: 058
     Dates: start: 20210215, end: 2021
  2. SILIQ [Suspect]
     Active Substance: BRODALUMAB
     Dosage: 210MG/ 1.5 ML, Q2 WEEKS
     Route: 058
     Dates: start: 2022, end: 20230715

REACTIONS (8)
  - Large intestine perforation [Unknown]
  - Diverticulum [Unknown]
  - Psoriatic arthropathy [Not Recovered/Not Resolved]
  - Dry skin [Unknown]
  - Psoriasis [Not Recovered/Not Resolved]
  - Symptom recurrence [Not Recovered/Not Resolved]
  - Therapeutic product effect incomplete [Unknown]
  - Therapy cessation [Unknown]

NARRATIVE: CASE EVENT DATE: 20211201
